FAERS Safety Report 4771597-7 (Version None)
Quarter: 2005Q3

REPORT INFORMATION
  Report Type: 
  Country: None (occurrence: None)
  Receive Date: 20050916
  Receipt Date: 20050713
  Transmission Date: 20060218
  Serious: Yes (Hospitalization)
  Sender: FDA-Public Use
  Company Number: JP-SP-2005-01475

PATIENT
  Age: 60 Year
  Sex: Male

DRUGS (2)
  1. IMMUCYST [Suspect]
     Indication: BLADDER CANCER
     Route: 043
     Dates: start: 20050315, end: 20050322
  2. IMMUCYST [Suspect]
     Route: 043
     Dates: start: 20050315, end: 20050322

REACTIONS (4)
  - BOVINE TUBERCULOSIS [None]
  - NECROSIS [None]
  - PROSTATITIS [None]
  - PYREXIA [None]
